FAERS Safety Report 16636991 (Version 1)
Quarter: 2019Q3

REPORT INFORMATION
  Report Type: Spontaneous
  Country: US (occurrence: US)
  Receive Date: 20190726
  Receipt Date: 20190726
  Transmission Date: 20191004
  Serious: No
  Sender: FDA-Public Use
  Company Number: US-HORIZON-VIM-0287-2019

PATIENT
  Age: 56 Year
  Sex: Female

DRUGS (4)
  1. VIMOVO [Suspect]
     Active Substance: ESOMEPRAZOLE MAGNESIUM\NAPROXEN
     Indication: SPINAL PAIN
     Dosage: TWICE DAILY IN MORNING AND EVENING
     Dates: start: 201904, end: 20190714
  2. TRAMADOL. [Concomitant]
     Active Substance: TRAMADOL
  3. MELOXICAM. [Concomitant]
     Active Substance: MELOXICAM
  4. MAGNESIUM [Concomitant]
     Active Substance: MAGNESIUM

REACTIONS (4)
  - Product distribution issue [Unknown]
  - Therapy cessation [Unknown]
  - Insurance issue [Unknown]
  - Therapeutic product effect decreased [Unknown]

NARRATIVE: CASE EVENT DATE: 20190714
